FAERS Safety Report 8997493 (Version 2)
Quarter: 2013Q1

REPORT INFORMATION
  Report Type: Report from Study
  Country: US (occurrence: US)
  Receive Date: 20130104
  Receipt Date: 20130205
  Transmission Date: 20140127
  Serious: Yes (Death)
  Sender: FDA-Public Use
  Company Number: US-US-EMD SERONO, INC.-7185103

PATIENT
  Sex: Male

DRUGS (8)
  1. EGRIFTA [Suspect]
     Indication: LIPODYSTROPHY ACQUIRED
     Route: 058
     Dates: start: 20120726
  2. GABAPENTIN [Concomitant]
     Indication: PRODUCT USED FOR UNKNOWN INDICATION
  3. INTELENCE [Concomitant]
     Indication: PRODUCT USED FOR UNKNOWN INDICATION
  4. NORVIR [Concomitant]
     Indication: PRODUCT USED FOR UNKNOWN INDICATION
  5. PREZISTA [Concomitant]
     Indication: PRODUCT USED FOR UNKNOWN INDICATION
  6. FUZEON [Concomitant]
     Indication: PRODUCT USED FOR UNKNOWN INDICATION
  7. FLONASE [Concomitant]
     Indication: PRODUCT USED FOR UNKNOWN INDICATION
  8. XANAX [Concomitant]
     Indication: PRODUCT USED FOR UNKNOWN INDICATION

REACTIONS (2)
  - Pneumonia [Fatal]
  - Dyspnoea [Fatal]
